FAERS Safety Report 4301631-X (Version None)
Quarter: 2004Q1

REPORT INFORMATION
  Report Type: 
  Country: None (occurrence: None)
  Receive Date: 20040218
  Receipt Date: 20031119
  Transmission Date: 20041129
  Serious: Yes (Other)
  Sender: FDA-Public Use
  Company Number: 2003-11-1966

PATIENT
  Age: 52 Year
  Sex: Male
  Weight: 78.4723 kg

DRUGS (3)
  1. PEG-INTRON [Suspect]
     Indication: HEPATITIS C
     Dosage: 150 MU QWK SUBCUTANEOUS
     Route: 058
     Dates: start: 20021204, end: 20031105
  2. REBETOL [Suspect]
     Indication: HEPATITIS C
     Dosage: 1200 MG QD ORAL
     Route: 048
     Dates: start: 20021204, end: 20031105
  3. EPOGEN [Concomitant]

REACTIONS (2)
  - ANAEMIA [None]
  - BLOOD THYROID STIMULATING HORMONE INCREASED [None]
